FAERS Safety Report 4485212-3 (Version None)
Quarter: 2004Q4

REPORT INFORMATION
  Report Type: 
  Country: None (occurrence: None)
  Receive Date: 20041026
  Receipt Date: 20040607
  Transmission Date: 20050328
  Serious: No
  Sender: FDA-Public Use
  Company Number: US-BRISTOL-MYERS SQUIBB COMPANY-12607636

PATIENT
  Age: 72 Year
  Sex: Female

DRUGS (6)
  1. GLUCOPHAGE XR [Suspect]
     Indication: DIABETES MELLITUS
     Route: 048
     Dates: start: 20000217
  2. TOPROL-XL [Concomitant]
  3. AMARYL [Concomitant]
  4. RANITIDINE [Concomitant]
  5. ZOCOR [Concomitant]
  6. NORTRIPTYLINE HCL [Concomitant]

REACTIONS (1)
  - RASH [None]
